FAERS Safety Report 7679488-9 (Version None)
Quarter: 2011Q3

REPORT INFORMATION
  Report Type: 
  Country: None (occurrence: None)
  Receive Date: 20110812
  Receipt Date: 20110812
  Transmission Date: 20111222
  Serious: No
  Sender: FDA-Public Use
  Company Number: None

PATIENT
  Age: 57 Year
  Sex: Female
  Weight: 54.431 kg

DRUGS (1)
  1. DYSPORT [Suspect]
     Indication: SKIN WRINKLING

REACTIONS (8)
  - EYE SWELLING [None]
  - BLISTER [None]
  - ERYTHEMA OF EYELID [None]
  - RASH MACULAR [None]
  - PRURITUS [None]
  - INJECTION SITE VESICLES [None]
  - SWELLING FACE [None]
  - PARAESTHESIA [None]
